FAERS Safety Report 15822556 (Version 1)
Quarter: 2019Q1

REPORT INFORMATION
  Report Type: Spontaneous
  Country: US (occurrence: US)
  Receive Date: 20190114
  Receipt Date: 20190114
  Transmission Date: 20190417
  Serious: Yes (Death)
  Sender: FDA-Public Use
  Company Number: US-ASTRAZENECA-2019SE05607

PATIENT
  Age: 65 Year
  Sex: Male

DRUGS (2)
  1. BRILINTA [Suspect]
     Active Substance: TICAGRELOR
     Indication: ANGINA UNSTABLE
     Dosage: 90.0MG UNKNOWN
     Route: 048
  2. INTEGRILIN [Concomitant]
     Active Substance: EPTIFIBATIDE
     Dosage: UNKNOWN
     Route: 065

REACTIONS (1)
  - Haemorrhage intracranial [Fatal]
